FAERS Safety Report 20153630 (Version 1)
Quarter: 2021Q4

REPORT INFORMATION
  Report Type: Report from Study
  Country: US (occurrence: US)
  Receive Date: 20211206
  Receipt Date: 20211206
  Transmission Date: 20220304
  Serious: Yes (Disabling)
  Sender: FDA-Public Use
  Company Number: US-ABBVIE-21K-163-4185422-00

PATIENT
  Sex: Female
  Weight: 44.492 kg

DRUGS (2)
  1. CREON [Suspect]
     Active Substance: PANCRELIPASE AMYLASE\PANCRELIPASE LIPASE\PANCRELIPASE PROTEASE
     Indication: Pancreatic failure
     Dosage: 2 TABLETS IN THE MORNING, 2 TABLETS IN THE AFTERNOON, AND 1 TABLET IN THE EVENING
     Route: 048
     Dates: start: 2011
  2. CREON [Suspect]
     Active Substance: PANCRELIPASE AMYLASE\PANCRELIPASE LIPASE\PANCRELIPASE PROTEASE
     Indication: Pancreatectomy

REACTIONS (6)
  - Parkinson^s disease [Unknown]
  - Dementia [Unknown]
  - Wheelchair user [Unknown]
  - Constipation [Not Recovered/Not Resolved]
  - Weight decreased [Unknown]
  - Malabsorption [Unknown]
